FAERS Safety Report 7053606-8 (Version None)
Quarter: 2010Q4

REPORT INFORMATION
  Report Type: 
  Country: None (occurrence: None)
  Receive Date: 20101020
  Receipt Date: 20101011
  Transmission Date: 20110411
  Serious: Yes (Death, Hospitalization, Other)
  Sender: FDA-Public Use
  Company Number: US-ROCHE-732500

PATIENT
  Age: 26 Year
  Sex: Female

DRUGS (6)
  1. OSELTAMIVIR [Suspect]
     Route: 065
  2. CHEMOTHERAPY [Suspect]
     Route: 065
  3. CYTARABINE [Concomitant]
     Dosage: HIGH DOSE
  4. ELSPAR [Concomitant]
  5. ACYCLOVIR SODIUM [Concomitant]
  6. SULFAMETHOXAZOLE AND TRIMETHOPRIM [Concomitant]

REACTIONS (8)
  - CARDIOMYOPATHY [None]
  - DIARRHOEA [None]
  - DRUG INEFFECTIVE [None]
  - HYPOTENSION [None]
  - NEUTROPENIA [None]
  - PATHOGEN RESISTANCE [None]
  - PERICARDIAL EFFUSION [None]
  - VIRAL MYOCARDITIS [None]
